FAERS Safety Report 10056773 (Version 2)
Quarter: 2014Q2

REPORT INFORMATION
  Report Type: Spontaneous
  Country: JP (occurrence: JP)
  Receive Date: 20140403
  Receipt Date: 20140425
  Transmission Date: 20141212
  Serious: Yes (Life-Threatening)
  Sender: FDA-Public Use
  Company Number: PHHY2014JP036591

PATIENT
  Sex: Female

DRUGS (3)
  1. MAGNESIUM SULFATE [Suspect]
     Route: 064
  2. HEPARIN [Suspect]
     Route: 064
  3. RITODRINE HYDROCHLORIDE [Suspect]
     Route: 064

REACTIONS (4)
  - Premature baby [Recovering/Resolving]
  - Apgar score low [Recovering/Resolving]
  - Acidosis [Recovering/Resolving]
  - Foetal exposure during pregnancy [Unknown]
